FAERS Safety Report 11133259 (Version 5)
Quarter: 2015Q4

REPORT INFORMATION
  Report Type: Spontaneous
  Country: JP (occurrence: JP)
  Receive Date: 20150522
  Receipt Date: 20151217
  Transmission Date: 20160304
  Serious: Yes (Death)
  Sender: FDA-Public Use
  Company Number: PHJP2015JP008051

PATIENT
  Age: 43 Year
  Sex: Female

DRUGS (12)
  1. COSENTYX [Suspect]
     Active Substance: SECUKINUMAB
     Indication: POLYARTHRITIS
     Dosage: 300 MG, UNK
     Route: 058
  2. LOXOPROFEN [Concomitant]
     Active Substance: LOXOPROFEN
     Indication: ARTHROPATHY
     Dosage: 60 MG, QD
     Route: 048
     Dates: start: 20130831, end: 20150516
  3. COSENTYX [Suspect]
     Active Substance: SECUKINUMAB
     Dosage: 300 MG, UNK
     Route: 058
  4. BAKTAR [Concomitant]
     Active Substance: SULFAMETHOXAZOLE\TRIMETHOPRIM
     Indication: ARTHROPATHY
     Dosage: 2 DF, BID
     Route: 048
     Dates: start: 20130620, end: 20150516
  5. LYRICA [Concomitant]
     Active Substance: PREGABALIN
     Indication: ARTHROPATHY
     Dosage: 25 MG, UNK
     Route: 048
     Dates: start: 20141125, end: 20150516
  6. COSENTYX [Suspect]
     Active Substance: SECUKINUMAB
     Indication: ERYTHRODERMIC PSORIASIS
     Dosage: 300 MG, UNK
     Route: 058
     Dates: start: 20150402
  7. COSENTYX [Suspect]
     Active Substance: SECUKINUMAB
     Dosage: 300 MG, UNK
     Route: 058
     Dates: start: 20150430
  8. ALLEGRA [Suspect]
     Active Substance: FEXOFENADINE HYDROCHLORIDE
     Indication: PSORIASIS
     Dosage: 60 MG, BID
     Route: 048
     Dates: start: 20150423, end: 20150516
  9. COCARL [Concomitant]
     Active Substance: ACETAMINOPHEN
     Indication: ARTHROPATHY
     Dosage: 200 MG, QID
     Route: 048
     Dates: start: 20130716, end: 20150516
  10. REBAMIPIDE [Concomitant]
     Active Substance: REBAMIPIDE
     Indication: ARTHROPATHY
     Dosage: 100 MG, QD
     Route: 048
     Dates: start: 20130831, end: 20150516
  11. TAKEPRON [Concomitant]
     Active Substance: LANSOPRAZOLE
     Indication: ARTHROPATHY
     Dosage: 15 MG, QD
     Route: 048
     Dates: start: 20141022, end: 20150516
  12. COSENTYX [Suspect]
     Active Substance: SECUKINUMAB
     Dosage: 300 MG, UNK
     Route: 058

REACTIONS (9)
  - Pyrexia [Unknown]
  - Apnoea [Fatal]
  - Pulmonary oedema [Fatal]
  - Cough [Unknown]
  - Dyspnoea [Fatal]
  - Cardiac arrest [Fatal]
  - Cardiac failure acute [Fatal]
  - Cardio-respiratory arrest [Fatal]
  - Depressed level of consciousness [Fatal]

NARRATIVE: CASE EVENT DATE: 20150514
